FAERS Safety Report 12197796 (Version 1)
Quarter: 2016Q1

REPORT INFORMATION
  Report Type: Spontaneous
  Country: US (occurrence: None)
  Receive Date: 20160321
  Receipt Date: 20160321
  Transmission Date: 20160526
  Serious: No
  Sender: FDA-Public Use
  Company Number: None

PATIENT
  Age: 41 Year
  Sex: Female
  Weight: 83.92 kg

DRUGS (10)
  1. ANTI-ITCH GEL [Concomitant]
  2. PULMICORT INHALER [Concomitant]
  3. TYLENOL [Concomitant]
     Active Substance: ACETAMINOPHEN
  4. MAKENA [Suspect]
     Active Substance: HYDROXYPROGESTERONE CAPROATE
     Indication: PREMATURE LABOUR
     Dosage: 250MG/ML  5ML. MDV WEEKLY INTO THE MUSCLE
     Route: 030
     Dates: start: 20160215, end: 20160314
  5. SUDAFED [Concomitant]
     Active Substance: PSEUDOEPHEDRINE HYDROCHLORIDE
  6. VENTOLIN [Concomitant]
     Active Substance: ALBUTEROL SULFATE
  7. TRICARE DHA ONE PRENATAL VITAMIN [Concomitant]
  8. MAKENA [Suspect]
     Active Substance: HYDROXYPROGESTERONE CAPROATE
     Indication: PROPHYLAXIS
     Dosage: 250MG/ML  5ML. MDV WEEKLY INTO THE MUSCLE
     Route: 030
     Dates: start: 20160215, end: 20160314
  9. FLUTICASONE PROPRIONATE NASAL SPRAY [Concomitant]
  10. BENADRYL [Concomitant]
     Active Substance: DIPHENHYDRAMINE HYDROCHLORIDE

REACTIONS (8)
  - Injection site pruritus [None]
  - Peripheral swelling [None]
  - Pharyngeal oedema [None]
  - Asthma [None]
  - Injection site swelling [None]
  - Injection site urticaria [None]
  - Injection site pain [None]
  - Muscle spasms [None]

NARRATIVE: CASE EVENT DATE: 20160320
